FAERS Safety Report 15907394 (Version 4)
Quarter: 2020Q3

REPORT INFORMATION
  Report Type: Spontaneous
  Country: US (occurrence: US)
  Receive Date: 20190204
  Receipt Date: 20200921
  Transmission Date: 20201102
  Serious: Yes (Death, Other)
  Sender: FDA-Public Use
  Company Number: US-ASTRAZENECA-2018SF13834

PATIENT
  Age: 28515 Day
  Sex: Male

DRUGS (17)
  1. NEXIUM [Suspect]
     Active Substance: ESOMEPRAZOLE MAGNESIUM
     Route: 048
     Dates: start: 2004, end: 2006
  2. AMOXICILLIN. [Concomitant]
     Active Substance: AMOXICILLIN
     Dates: start: 20031209
  3. AVANDAMET [Concomitant]
     Active Substance: METFORMIN HYDROCHLORIDE\ROSIGLITAZONE MALEATE
     Dates: start: 20041019
  4. ROLAIDS [Concomitant]
     Active Substance: CALCIUM CARBONATE\MAGNESIUM HYDROXIDE
  5. LIPITOR [Concomitant]
     Active Substance: ATORVASTATIN CALCIUM
     Dates: start: 20031209
  6. MYLANTA [Concomitant]
     Active Substance: ALUMINUM HYDROXIDE\DIMETHICONE\MAGNESIUM HYDROXIDE
  7. LISINOPRIL. [Concomitant]
     Active Substance: LISINOPRIL
     Dates: start: 20040102
  8. GLYBURIDE. [Concomitant]
     Active Substance: GLYBURIDE
     Dates: start: 20041019
  9. CLONIDINE. [Concomitant]
     Active Substance: CLONIDINE
     Dates: start: 20040102
  10. TOPROL XL [Concomitant]
     Active Substance: METOPROLOL SUCCINATE
     Dates: start: 20041019
  11. NITROLINGUAL [Concomitant]
     Active Substance: NITROGLYCERIN
     Dates: start: 20041019
  12. PEPTO?BISMOL [Concomitant]
     Active Substance: BISMUTH SUBSALICYLATE
  13. GLUCOTROL [Concomitant]
     Active Substance: GLIPIZIDE
     Dates: start: 20040102
  14. METFORMIN [Concomitant]
     Active Substance: METFORMIN HYDROCHLORIDE
     Dates: start: 20041019
  15. NEXIUM [Suspect]
     Active Substance: ESOMEPRAZOLE MAGNESIUM
     Route: 048
     Dates: start: 20040825
  16. AMARYL [Concomitant]
     Active Substance: GLIMEPIRIDE
     Dates: start: 20031202
  17. AVANDIA [Concomitant]
     Active Substance: ROSIGLITAZONE MALEATE
     Dates: start: 20041019

REACTIONS (5)
  - Cardiac arrest [Fatal]
  - End stage renal disease [Fatal]
  - Chronic kidney disease [Unknown]
  - Renal failure [Unknown]
  - Renal disorder [Unknown]

NARRATIVE: CASE EVENT DATE: 20160918
